FAERS Safety Report 8740810 (Version 2)
Quarter: 2012Q4

REPORT INFORMATION
  Report Type: 
  Country: IT (occurrence: IT)
  Receive Date: 20120823
  Receipt Date: 20120906
  Transmission Date: 20130627
  Serious: Yes (Hospitalization)
  Sender: FDA-Public Use
  Company Number: IT-ASTRAZENECA-2012SE57460

PATIENT
  Age: 43 Day
  Sex: Male

DRUGS (3)
  1. CRESTOR [Suspect]
     Indication: DYSLIPIDAEMIA
     Route: 048
     Dates: start: 20110101, end: 20120725
  2. ESAPENT [Concomitant]
     Indication: DYSLIPIDAEMIA
     Dosage: 1 gramm, soft capsules
  3. NORVASC [Concomitant]
     Indication: HYPERTENSION
     Dosage: 5 milligram tablets, two dosage form, unknown frequency.
     Route: 048
     Dates: start: 20120710, end: 20120725

REACTIONS (2)
  - Renal failure acute [Recovered/Resolved]
  - Rhabdomyolysis [Recovered/Resolved]
